FAERS Safety Report 9174088 (Version 2)
Quarter: 2013Q2

REPORT INFORMATION
  Report Type: Spontaneous
  Country: US (occurrence: US)
  Receive Date: 20130320
  Receipt Date: 20130422
  Transmission Date: 20140414
  Serious: No
  Sender: FDA-Public Use
  Company Number: US-PFIZER INC-2013089091

PATIENT
  Age: 56 Year
  Sex: Female
  Weight: 77.1 kg

DRUGS (6)
  1. LYRICA [Suspect]
     Indication: FIBROMYALGIA
     Dosage: 200 MG, 3X/DAY
     Route: 048
     Dates: start: 2008, end: 20130311
  2. LYRICA [Suspect]
     Dosage: 300 MG (TWO CAPSULES OF 150MG), 2X/DAY
     Route: 048
     Dates: start: 20130311
  3. AMITIZA [Concomitant]
     Indication: IRRITABLE BOWEL SYNDROME
     Dosage: 4 MG, 2X/DAY
  4. CRESTOR [Concomitant]
     Indication: HYPERLIPIDAEMIA
     Dosage: UNK
  5. XANAX [Concomitant]
     Indication: PANIC ATTACK
     Dosage: UNK
  6. RESTASIS [Concomitant]
     Indication: GLAUCOMA
     Dosage: UNK

REACTIONS (6)
  - Neck pain [Unknown]
  - Headache [Unknown]
  - Formication [Unknown]
  - Hyperaesthesia [Unknown]
  - Insomnia [Unknown]
  - Drug ineffective [Unknown]
